FAERS Safety Report 26153682 (Version 2)
Quarter: 2025Q4

REPORT INFORMATION
  Report Type: Report from Study
  Country: US (occurrence: US)
  Receive Date: 20251214
  Receipt Date: 20251217
  Transmission Date: 20260119
  Serious: Yes (Death, Other)
  Sender: ABBVIE
  Company Number: US-ABBVIE-6589280

PATIENT
  Sex: Male

DRUGS (1)
  1. VRAYLAR [Suspect]
     Active Substance: CARIPRAZINE
     Indication: Product used for unknown indication
     Route: 048

REACTIONS (6)
  - Coronary artery disease [Fatal]
  - Arthropathy [Unknown]
  - Infection [Unknown]
  - Coronary artery occlusion [Fatal]
  - Knee arthroplasty [Unknown]
  - Cerebrovascular accident [Fatal]
